FAERS Safety Report 7346651-6 (Version None)
Quarter: 2011Q1

REPORT INFORMATION
  Report Type: 
  Country: None (occurrence: None)
  Receive Date: 20110311
  Receipt Date: 20110301
  Transmission Date: 20110831
  Serious: Yes (Other)
  Sender: FDA-Public Use
  Company Number: US-SANOFI-AVENTIS-2010SA039131

PATIENT
  Age: 55 Year
  Sex: Male
  Weight: 115.91 kg

DRUGS (21)
  1. AMBIEN [Suspect]
     Route: 048
     Dates: start: 20050221, end: 20090901
  2. MORPHINE SULFATE [Concomitant]
  3. QUININE [Concomitant]
  4. ZOLOFT [Concomitant]
     Indication: DEPRESSION
  5. NASAL SPRAY [Concomitant]
  6. TEMAZEPAM [Concomitant]
  7. SUMATRIPTAN [Concomitant]
  8. METHADON HCL TAB [Concomitant]
     Indication: BACK INJURY
  9. SERTRALINE [Concomitant]
  10. KETOPROFEN [Concomitant]
     Indication: BACK INJURY
  11. ALLOPURINOL [Concomitant]
  12. BUPROPION [Concomitant]
  13. LISINOPRIL [Concomitant]
  14. DEPAKOTE [Concomitant]
     Indication: DEPRESSION
     Route: 065
  15. ULTRAM [Concomitant]
     Indication: BACK INJURY
  16. VALPROIC ACID [Concomitant]
     Indication: DEPRESSION
  17. OXYCODONE [Concomitant]
  18. ADALAT CC [Concomitant]
  19. IMIPRAMINE [Concomitant]
     Indication: BACK INJURY
  20. ZOLPIDEM TARTRATE [Suspect]
     Route: 048
     Dates: start: 20080703
  21. METHYLPHENIDATE [Concomitant]

REACTIONS (8)
  - FALL [None]
  - SOMNAMBULISM [None]
  - COMPRESSION FRACTURE [None]
  - MUSCULOSKELETAL PAIN [None]
  - NECK PAIN [None]
  - PAIN IN EXTREMITY [None]
  - MUSCULAR WEAKNESS [None]
  - ROTATOR CUFF SYNDROME [None]
